FAERS Safety Report 14783278 (Version 2)
Quarter: 2018Q2

REPORT INFORMATION
  Report Type: Spontaneous
  Country: US (occurrence: US)
  Receive Date: 20180420
  Receipt Date: 20180422
  Transmission Date: 20180711
  Serious: Yes (Hospitalization, Other)
  Sender: FDA-Public Use
  Company Number: US-APOTEX-2018AP011124

PATIENT
  Age: 3 Year

DRUGS (2)
  1. LAMOTRIGINE. [Suspect]
     Active Substance: LAMOTRIGINE
     Indication: PRODUCT USED FOR UNKNOWN INDICATION
     Dosage: 25 MG, 7?16 TABLET
     Route: 065
  2. CLONAZEPAM. [Suspect]
     Active Substance: CLONAZEPAM
     Indication: PRODUCT USED FOR UNKNOWN INDICATION
     Dosage: 0.5 MG, 1-6 TABLET
     Route: 065

REACTIONS (5)
  - Respiratory failure [Recovered/Resolved]
  - Generalised tonic-clonic seizure [Recovered/Resolved]
  - Somnolence [Unknown]
  - Accidental exposure to product [Unknown]
  - Toxicity to various agents [Unknown]
